FAERS Safety Report 26106998 (Version 2)
Quarter: 2025Q4

REPORT INFORMATION
  Report Type: Spontaneous
  Country: EU (occurrence: EU)
  Receive Date: 20251201
  Receipt Date: 20251214
  Transmission Date: 20260119
  Serious: Yes (Hospitalization)
  Sender: AUROBINDO
  Company Number: EU-AstrazenecaRSG-7002-D926QC00001(Prod)000011

PATIENT
  Age: 42 Year
  Sex: Female
  Weight: 59 kg

DRUGS (59)
  1. CARBOPLATIN [Suspect]
     Active Substance: CARBOPLATIN
     Indication: Triple negative breast cancer
     Dosage: 1.5 AUC, ONCE EVERY 1 WK
     Dates: start: 20250421, end: 20250421
  2. CARBOPLATIN [Suspect]
     Active Substance: CARBOPLATIN
     Dosage: 1.5 AUC, ONCE EVERY 1 WK
     Dates: start: 20250526, end: 20250526
  3. CARBOPLATIN [Suspect]
     Active Substance: CARBOPLATIN
     Dosage: 1.5 AUC, ONCE EVERY 1 WK
     Dates: start: 20250331, end: 20250331
  4. CARBOPLATIN [Suspect]
     Active Substance: CARBOPLATIN
     Dosage: 1.5 AUC, ONCE EVERY 1 WK
     Dates: start: 20250303, end: 20250303
  5. CARBOPLATIN [Suspect]
     Active Substance: CARBOPLATIN
     Dosage: 1.5 AUC, ONCE EVERY 1 WK
     Dates: start: 20250224, end: 20250224
  6. CARBOPLATIN [Suspect]
     Active Substance: CARBOPLATIN
     Dosage: 1.5 AUC, ONCE EVERY 1 WK
     Dates: start: 20250317, end: 20250317
  7. CARBOPLATIN [Suspect]
     Active Substance: CARBOPLATIN
     Dosage: 1.5 AUC, ONCE EVERY 1 WK
     Dates: start: 20250324, end: 20250324
  8. CARBOPLATIN [Suspect]
     Active Substance: CARBOPLATIN
     Dosage: 1.5 AUC, ONCE EVERY 1 WK
     Dates: start: 20250310, end: 20250310
  9. CARBOPLATIN [Suspect]
     Active Substance: CARBOPLATIN
     Dosage: 1.5 AUC, ONCE EVERY 1 WK
     Dates: start: 20250512, end: 20250512
  10. CARBOPLATIN [Suspect]
     Active Substance: CARBOPLATIN
     Dosage: 1.5 AUC, ONCE EVERY 1 WK
     Dates: start: 20250324, end: 20250324
  11. CARBOPLATIN [Suspect]
     Active Substance: CARBOPLATIN
     Dosage: 1.5 AUC, ONCE EVERY 1 WK
     Dates: start: 20250310, end: 20250310
  12. CARBOPLATIN [Suspect]
     Active Substance: CARBOPLATIN
     Dosage: 1.5 AUC, ONCE EVERY 1 WK
     Dates: start: 20250428, end: 20250428
  13. CARBOPLATIN [Suspect]
     Active Substance: CARBOPLATIN
     Dosage: 1.5 AUC, ONCE EVERY 1 WK
     Dates: start: 20250217, end: 20250217
  14. CARBOPLATIN [Suspect]
     Active Substance: CARBOPLATIN
     Dosage: 1.5 AUC, ONCE EVERY 1 WK
  15. DOXORUBICIN [Suspect]
     Active Substance: DOXORUBICIN
     Indication: Triple negative breast cancer
     Dosage: 60 MILLIGRAM/SQ. METER
     Dates: start: 20250602, end: 20250602
  16. DOXORUBICIN [Suspect]
     Active Substance: DOXORUBICIN
     Dosage: 60 MILLIGRAM/SQ. METER
     Dates: start: 20250623, end: 20250623
  17. DOXORUBICIN [Suspect]
     Active Substance: DOXORUBICIN
     Dosage: 60 MILLIGRAM/SQ. METER
     Dates: start: 20250804, end: 20250804
  18. DOXORUBICIN [Suspect]
     Active Substance: DOXORUBICIN
     Dosage: 60 MILLIGRAM/SQ. METER
  19. PACLITAXEL [Suspect]
     Active Substance: PACLITAXEL
     Indication: Triple negative breast cancer
     Dosage: 80 MG/M2, ONCE EVERY 1 WK
     Dates: start: 20250519, end: 20250519
  20. PACLITAXEL [Suspect]
     Active Substance: PACLITAXEL
     Dosage: 80 MG/M2, ONCE EVERY 1 WK
     Dates: start: 20250512, end: 20250512
  21. PACLITAXEL [Suspect]
     Active Substance: PACLITAXEL
     Dosage: 80 MG/M2, ONCE EVERY 1 WK
     Dates: start: 20250217, end: 20250217
  22. PACLITAXEL [Suspect]
     Active Substance: PACLITAXEL
     Dosage: 80 MG/M2, ONCE EVERY 1 WK
     Dates: start: 20250303, end: 20250303
  23. PACLITAXEL [Suspect]
     Active Substance: PACLITAXEL
     Dosage: 80 MG/M2, ONCE EVERY 1 WK
     Dates: start: 20250421, end: 20250421
  24. PACLITAXEL [Suspect]
     Active Substance: PACLITAXEL
     Dosage: 80 MG/M2, ONCE EVERY 1 WK
     Dates: start: 20250324, end: 20250324
  25. PACLITAXEL [Suspect]
     Active Substance: PACLITAXEL
     Dosage: 80 MG/M2, ONCE EVERY 1 WK
     Dates: start: 20250310, end: 20250324
  26. PACLITAXEL [Suspect]
     Active Substance: PACLITAXEL
     Dosage: 80 MG/M2, ONCE EVERY 1 WK
     Dates: start: 20250317, end: 20250317
  27. PACLITAXEL [Suspect]
     Active Substance: PACLITAXEL
     Dosage: 80 MG/M2, ONCE EVERY 1 WK
     Dates: start: 20250526, end: 20250526
  28. PACLITAXEL [Suspect]
     Active Substance: PACLITAXEL
     Dosage: 80 MG/M2, ONCE EVERY 1 WK
     Dates: start: 20250224, end: 20250224
  29. PACLITAXEL [Suspect]
     Active Substance: PACLITAXEL
     Dosage: 80 MG/M2, ONCE EVERY 1 WK
     Dates: start: 20250428, end: 20250428
  30. PACLITAXEL [Suspect]
     Active Substance: PACLITAXEL
     Dosage: 80 MG/M2, ONCE EVERY 1 WK
     Dates: start: 20250331, end: 20250331
  31. PEMBROLIZUMAB [Suspect]
     Active Substance: PEMBROLIZUMAB
     Indication: Triple negative breast cancer
     Dosage: 200 MG, ONCE EVERY 3 WK
     Dates: start: 20250217, end: 20250217
  32. PEMBROLIZUMAB [Suspect]
     Active Substance: PEMBROLIZUMAB
     Dosage: 200 MG, ONCE EVERY 3 WK
     Dates: start: 20250331, end: 20250331
  33. PEMBROLIZUMAB [Suspect]
     Active Substance: PEMBROLIZUMAB
     Dosage: 200 MG, ONCE EVERY 3 WK
     Dates: start: 20250804, end: 20250804
  34. PEMBROLIZUMAB [Suspect]
     Active Substance: PEMBROLIZUMAB
     Dosage: 200 MG, ONCE EVERY 3 WK
     Dates: start: 20250602, end: 20250602
  35. PEMBROLIZUMAB [Suspect]
     Active Substance: PEMBROLIZUMAB
     Dosage: 200 MG, ONCE EVERY 3 WK
     Dates: start: 20250512, end: 20250512
  36. PEMBROLIZUMAB [Suspect]
     Active Substance: PEMBROLIZUMAB
     Dosage: 200 MG, ONCE EVERY 3 WK
     Dates: start: 20250623, end: 20250623
  37. PEMBROLIZUMAB [Suspect]
     Active Substance: PEMBROLIZUMAB
     Dosage: 200 MG, ONCE EVERY 3 WK
     Dates: start: 20250714, end: 20250714
  38. PEMBROLIZUMAB [Suspect]
     Active Substance: PEMBROLIZUMAB
     Dosage: 200 MG, ONCE EVERY 3 WK
  39. CYCLOPHOSPHAMIDE [Suspect]
     Active Substance: CYCLOPHOSPHAMIDE
     Indication: Triple negative breast cancer
     Dosage: 600 MG/M2, ONCE EVERY 3 WK
     Dates: start: 20250602, end: 20250602
  40. CYCLOPHOSPHAMIDE [Suspect]
     Active Substance: CYCLOPHOSPHAMIDE
     Dosage: 600 MG/M2, ONCE EVERY 3 WK
     Dates: start: 20250623, end: 20250623
  41. CYCLOPHOSPHAMIDE [Suspect]
     Active Substance: CYCLOPHOSPHAMIDE
     Dosage: 600 MG/M2, ONCE EVERY 3 WK
     Dates: start: 20250714, end: 20250714
  42. CYCLOPHOSPHAMIDE [Suspect]
     Active Substance: CYCLOPHOSPHAMIDE
     Dosage: 600 MG/M2, ONCE EVERY 3 WK
  43. DEXAMETHASONE [Concomitant]
     Active Substance: DEXAMETHASONE
     Indication: Prophylaxis
     Dosage: 12 MILLIGRAM, 30 MINUTES BEFORE EACH CYCLE
  44. DEXAMETHASONE [Concomitant]
     Active Substance: DEXAMETHASONE
     Dosage: 8 MILLIGRAM, THE 2ND AND 3RD DAYS AFTER THE CYCLE
     Route: 061
  45. DEXAMETHASONE [Concomitant]
     Active Substance: DEXAMETHASONE
     Dosage: 10 MG, AS NEEDED
     Dates: start: 20250303, end: 20250526
  46. DEXAMETHASONE [Concomitant]
     Active Substance: DEXAMETHASONE
     Dosage: 4 MILLIGRAM, THE FOURTH DAY OF THE CYCLE
     Route: 061
  47. APREPITANT [Concomitant]
     Active Substance: APREPITANT
     Indication: Prophylaxis
     Dosage: 125 MILLIGRAM, 1 HOUR BEFORE EACH CYCLE
     Route: 061
  48. APREPITANT [Concomitant]
     Active Substance: APREPITANT
     Dosage: 80 MILLIGRAM, THE 2ND AND 3RD DAYS AFTER THE CYCLE
     Route: 061
  49. DEXCHLORPHENIRAMINE [Concomitant]
     Active Substance: DEXCHLORPHENIRAMINE
     Indication: Prophylaxis
     Dosage: 5 MILLIGRAM, AS NECESSARY
     Route: 065
     Dates: start: 20250217, end: 20250526
  50. AMOXICILLIN [Concomitant]
     Active Substance: AMOXICILLIN
     Indication: Pyrexia
     Dosage: 1500 MG, QD (500 MILLIGRAM, TID)
     Route: 061
     Dates: start: 20250909, end: 20251117
  51. AMOXICILLIN [Concomitant]
     Active Substance: AMOXICILLIN
     Indication: Prophylaxis
     Dosage: 1500 MG, QD (500 MILLIGRAM, TID)
     Route: 061
     Dates: start: 20250908, end: 20250908
  52. CLAVULANIC ACID [Concomitant]
     Active Substance: CLAVULANIC ACID
     Indication: Pyrexia
     Dosage: 375 MG, QD (125 MILLIGRAM, TID)
     Route: 061
     Dates: start: 20250909, end: 20250917
  53. CLAVULANIC ACID [Concomitant]
     Active Substance: CLAVULANIC ACID
     Indication: Prophylaxis
     Dosage: 375 MG, QD (125 MILLIGRAM, TID)
     Route: 061
     Dates: start: 20250908, end: 20250908
  54. ACETAMINOPHEN [Concomitant]
     Active Substance: ACETAMINOPHEN
     Indication: Pyrexia
     Dosage: 30 MILLIGRAM, ONCE A DAY (30 MG, QD (10 MILLIGRAM, TID))
     Dates: start: 20250906, end: 20250908
  55. DEXKETOPROFEN [Concomitant]
     Active Substance: DEXKETOPROFEN
     Indication: Prophylaxis
     Dosage: 75 MILLIGRAM, ONCE A DAY (75 MG, QD (25 MILLIGRAM, TID)0
     Route: 061
  56. GRANISETRON [Concomitant]
     Active Substance: GRANISETRON
     Indication: Prophylaxis
     Dosage: 3 MG, AS NEEDED
     Dates: start: 20250217, end: 20250526
  57. FAMOTIDINE [Concomitant]
     Active Substance: FAMOTIDINE
     Indication: Prophylaxis
     Dosage: 20 MG, AS NEEDED
     Dates: start: 20250217, end: 20250526
  58. ENOXAPARIN SODIUM [Concomitant]
     Active Substance: ENOXAPARIN SODIUM
     Indication: Product used for unknown indication
     Dosage: 40 MILLIGRAM, ONCE A DAY
     Route: 065
     Dates: start: 20250905, end: 20251005
  59. ONDANSETRON [Concomitant]
     Active Substance: ONDANSETRON
     Indication: Prophylaxis
     Dosage: 8 MILLIGRAM, 30 MINUTES BEFORE EACH CYCLE

REACTIONS (1)
  - Post procedural fever [Recovered/Resolved]

NARRATIVE: CASE EVENT DATE: 20250906
